FAERS Safety Report 7579168-4 (Version None)
Quarter: 2011Q2

REPORT INFORMATION
  Report Type: 
  Country: None (occurrence: None)
  Receive Date: 20110628
  Receipt Date: 20110624
  Transmission Date: 20111010
  Serious: Yes (Life-Threatening, Hospitalization)
  Sender: FDA-Public Use
  Company Number: DE-BRISTOL-MYERS SQUIBB COMPANY-15721111

PATIENT
  Age: 71 Year
  Sex: Male

DRUGS (2)
  1. IPILIMUMAB [Suspect]
     Indication: PROSTATE CANCER
     Dosage: NO OF COURSES: 1
     Route: 042
     Dates: start: 20110418, end: 20110506
  2. BLINDED: PLACEBO [Suspect]
     Indication: PROSTATE CANCER
     Dosage: NO OF COURSES: 1
     Route: 042
     Dates: start: 20110418, end: 20110506

REACTIONS (5)
  - UROSEPSIS [None]
  - MYASTHENIA GRAVIS CRISIS [None]
  - MOTOR DYSFUNCTION [None]
  - IVTH NERVE PARALYSIS [None]
  - MYASTHENIA GRAVIS [None]
